FAERS Safety Report 12922535 (Version 1)
Quarter: 2016Q4

REPORT INFORMATION
  Report Type: Spontaneous
  Country: US (occurrence: US)
  Receive Date: 20161108
  Receipt Date: 20161108
  Transmission Date: 20170207
  Serious: Yes (Disabling)
  Sender: FDA-Public Use
  Company Number: None

PATIENT
  Age: 61 Year
  Sex: Male
  Weight: 75.15 kg

DRUGS (10)
  1. ONDONESTRAN [Concomitant]
  2. POTASSIUM [Concomitant]
     Active Substance: POTASSIUM
  3. CLOPIDOGREL [Suspect]
     Active Substance: CLOPIDOGREL BISULFATE
     Indication: CORONARY ARTERIAL STENT INSERTION
     Dosage: ?          QUANTITY:30 TABLET(S);?
     Route: 048
     Dates: start: 20160407, end: 20161024
  4. ASPIRIN 81 [Concomitant]
     Active Substance: ASPIRIN
  5. LISINOPRIL. [Concomitant]
     Active Substance: LISINOPRIL
  6. VITAMEN E [Concomitant]
  7. MULTI VITAMENS [Concomitant]
  8. FISH OIL [Concomitant]
     Active Substance: FISH OIL
  9. FURESEMIDE [Concomitant]
  10. FAMOTINE [Concomitant]
     Active Substance: FAMOTINE

REACTIONS (2)
  - Myalgia [None]
  - Motor dysfunction [None]

NARRATIVE: CASE EVENT DATE: 20160407
